FAERS Safety Report 8728298 (Version 3)
Quarter: 2012Q4

REPORT INFORMATION
  Report Type: 
  Country: JP (occurrence: JP)
  Receive Date: 20120817
  Receipt Date: 20120918
  Transmission Date: 20130627
  Serious: Yes (Hospitalization)
  Sender: FDA-Public Use
  Company Number: JP-ABBOTT-12P-087-0966744-00

PATIENT
  Age: 57 Year
  Sex: Female

DRUGS (3)
  1. KLARICID TABLETS [Suspect]
     Indication: HELICOBACTER INFECTION
     Route: 048
     Dates: start: 201109, end: 201110
  2. PASETOCIN [Suspect]
     Indication: HELICOBACTER INFECTION
  3. LANSOPRAZOLE [Concomitant]
     Indication: HELICOBACTER INFECTION

REACTIONS (1)
  - Erythema multiforme [Unknown]
